FAERS Safety Report 6306350-6 (Version None)
Quarter: 2009Q3

REPORT INFORMATION
  Report Type: 
  Country: None (occurrence: None)
  Receive Date: 20090812
  Receipt Date: 20090803
  Transmission Date: 20100115
  Serious: Yes (Other)
  Sender: FDA-Public Use
  Company Number: GB-ELI_LILLY_AND_COMPANY-GB200907002882

PATIENT
  Age: 72 Year
  Sex: Female

DRUGS (9)
  1. FLUOXETINE [Suspect]
     Dosage: UNK, UNKNOWN
     Route: 065
  2. LANSOPRAZOLE [Concomitant]
  3. WARFARIN [Concomitant]
     Dates: end: 20030901
  4. CODEINE [Concomitant]
  5. LEVOTHYROXINE [Concomitant]
     Dosage: 100 UG, DAILY (1/D)
  6. LEVOTHYROXINE [Concomitant]
     Dosage: UNK, UNKNOWN (UNKNOWN INCREASED DOSE)
  7. LOPERAMIDE [Concomitant]
  8. TEMAZEPAM [Concomitant]
  9. PHENINDIONE [Concomitant]
     Indication: ANTICOAGULANT THERAPY
     Route: 048

REACTIONS (6)
  - DRUG INTERACTION [None]
  - FEEDING DISORDER [None]
  - HEPATITIS CHOLESTATIC [None]
  - HYPOREFLEXIA [None]
  - PRURITUS [None]
  - SEPSIS [None]
